FAERS Safety Report 4363173-5 (Version None)
Quarter: 2004Q2

REPORT INFORMATION
  Report Type: 
  Country: None (occurrence: None)
  Receive Date: 20040524
  Receipt Date: 20030818
  Transmission Date: 20050107
  Serious: No
  Sender: FDA-Public Use
  Company Number: US-GLAXOSMITHKLINE-A0422296A

PATIENT
  Age: 72 Year
  Sex: Male

DRUGS (3)
  1. BACTROBAN [Suspect]
     Indication: INFECTION PROPHYLAXIS
     Dosage: 1APP PER DAY
     Route: 061
  2. ASPIRIN [Concomitant]
  3. MULTIVITAMIN [Concomitant]

REACTIONS (3)
  - APPLICATION SITE ERYTHEMA [None]
  - APPLICATION SITE PAIN [None]
  - APPLICATION SITE SWELLING [None]
